FAERS Safety Report 9731841 (Version 1)
Quarter: 2013Q4

REPORT INFORMATION
  Report Type: Spontaneous
  Country: US (occurrence: US)
  Receive Date: 20131205
  Receipt Date: 20131205
  Transmission Date: 20140711
  Serious: No
  Sender: FDA-Public Use
  Company Number: US-ENDO PHARMACEUTICALS INC.-HCDA20120015

PATIENT
  Sex: Female
  Weight: 79.45 kg

DRUGS (3)
  1. HYDROCODONE/ACETAMINOPHEN 5MG/500MG [Suspect]
     Indication: MUSCULOSKELETAL PAIN
     Dosage: 15 MG/1500 MG
     Route: 048
     Dates: start: 201007, end: 201202
  2. VALIUM [Concomitant]
  3. PREMARIN [Concomitant]

REACTIONS (3)
  - Panic attack [Unknown]
  - Blood pressure increased [Unknown]
  - Drug ineffective [Recovered/Resolved]
